FAERS Safety Report 25215380 (Version 2)
Quarter: 2025Q2

REPORT INFORMATION
  Report Type: Report from Study
  Country: KR (occurrence: KR)
  Receive Date: 20250418
  Receipt Date: 20250426
  Transmission Date: 20250717
  Serious: Yes (Hospitalization)
  Sender: ABBVIE
  Company Number: KR-ABBVIE-6207146

PATIENT
  Age: 40 Year
  Sex: Male
  Weight: 75 kg

DRUGS (8)
  1. RINVOQ [Suspect]
     Active Substance: UPADACITINIB
     Indication: Crohn^s disease
     Route: 048
     Dates: start: 20250324
  2. Mycal d [Concomitant]
     Indication: Crohn^s disease
     Dates: start: 20250317, end: 20250325
  3. Mycal d [Concomitant]
     Indication: Crohn^s disease
     Route: 048
     Dates: start: 20250402
  4. PENTASA [Concomitant]
     Active Substance: MESALAMINE
     Indication: Crohn^s disease
     Dates: start: 20250318, end: 20250325
  5. Coolprep [Concomitant]
     Indication: Colonoscopy
     Route: 048
     Dates: start: 20250410, end: 20250410
  6. AZATHIOPRINE [Concomitant]
     Active Substance: AZATHIOPRINE
     Indication: Crohn^s disease
     Dates: start: 20250318, end: 20250325
  7. K-cab [Concomitant]
     Indication: Crohn^s disease
     Dates: start: 20250312, end: 20250326
  8. K-cab [Concomitant]
     Indication: Crohn^s disease
     Route: 048
     Dates: start: 20250402

REACTIONS (2)
  - Gastrointestinal haemorrhage [Recovered/Resolved]
  - Abdominal pain [Recovering/Resolving]

NARRATIVE: CASE EVENT DATE: 20250326
